FAERS Safety Report 6291294-9 (Version None)
Quarter: 2009Q3

REPORT INFORMATION
  Report Type: 
  Country: None (occurrence: None)
  Receive Date: 20090730
  Receipt Date: 20090724
  Transmission Date: 20100115
  Serious: Yes (Hospitalization, Other)
  Sender: FDA-Public Use
  Company Number: US-BAYER-200922884NA

PATIENT
  Age: 70 Year
  Sex: Female

DRUGS (4)
  1. NEXAVAR [Suspect]
     Indication: RENAL CELL CARCINOMA
     Dosage: UNIT DOSE: 200 MG
     Route: 048
     Dates: start: 20090616
  2. NEXAVAR [Suspect]
     Dosage: TOTAL DAILY DOSE: 800 MG  UNIT DOSE: 200 MG
     Route: 048
     Dates: start: 20090601, end: 20090609
  3. BLOOD PRESSURE MEDICATION [Concomitant]
  4. DULCOLAX [Concomitant]

REACTIONS (8)
  - BLOOD PRESSURE INCREASED [None]
  - CONSTIPATION [None]
  - DIARRHOEA [None]
  - EYELID IRRITATION [None]
  - FAECES DISCOLOURED [None]
  - HAEMATOCHEZIA [None]
  - HYPERAESTHESIA [None]
  - RASH MACULAR [None]
